FAERS Safety Report 22230802 (Version 1)
Quarter: 2023Q2

REPORT INFORMATION
  Report Type: Report from Study
  Country: CN (occurrence: CN)
  Receive Date: 20230420
  Receipt Date: 20230420
  Transmission Date: 20230721
  Serious: Yes (Other)
  Sender: FDA-Public Use
  Company Number: CN-KYOWAKIRIN-2021AKK021548

PATIENT

DRUGS (20)
  1. BUROSUMAB [Suspect]
     Active Substance: BUROSUMAB
     Indication: Hereditary hypophosphataemic rickets
     Dosage: 50 MG
     Route: 065
     Dates: start: 20220228, end: 20230106
  2. BUROSUMAB [Suspect]
     Active Substance: BUROSUMAB
     Dosage: 50 MG
     Route: 065
     Dates: start: 20220328, end: 20230106
  3. BUROSUMAB [Suspect]
     Active Substance: BUROSUMAB
     Dosage: 50 MG
     Route: 065
     Dates: start: 20220428, end: 20230106
  4. BUROSUMAB [Suspect]
     Active Substance: BUROSUMAB
     Dosage: 50 MG
     Route: 065
     Dates: start: 20220527, end: 20230106
  5. BUROSUMAB [Suspect]
     Active Substance: BUROSUMAB
     Dosage: 50 MG
     Route: 065
     Dates: start: 20220624, end: 20230106
  6. BUROSUMAB [Suspect]
     Active Substance: BUROSUMAB
     Dosage: 50 MG
     Route: 065
     Dates: start: 20220722, end: 20230106
  7. BUROSUMAB [Suspect]
     Active Substance: BUROSUMAB
     Dosage: 50 MG
     Route: 065
     Dates: start: 20220816, end: 20230106
  8. BUROSUMAB [Suspect]
     Active Substance: BUROSUMAB
     Dosage: 50 MG
     Route: 065
     Dates: start: 20220916, end: 20230106
  9. BUROSUMAB [Suspect]
     Active Substance: BUROSUMAB
     Dosage: 50 MG
     Route: 065
     Dates: start: 20221014, end: 20230106
  10. BUROSUMAB [Suspect]
     Active Substance: BUROSUMAB
     Dosage: 50 MG
     Route: 065
     Dates: start: 20221104, end: 20230106
  11. BUROSUMAB [Suspect]
     Active Substance: BUROSUMAB
     Dosage: 50 MG
     Route: 065
     Dates: start: 20221205, end: 20230106
  12. BUROSUMAB [Suspect]
     Active Substance: BUROSUMAB
     Dosage: 50 MG
     Route: 065
     Dates: start: 20230106, end: 20230106
  13. HERBAL NOS [Concomitant]
     Active Substance: HERBALS
     Indication: Influenza like illness
     Dosage: UNK
     Route: 048
     Dates: start: 20220402, end: 20220402
  14. SODIUM HYALURONATE [Concomitant]
     Active Substance: HYALURONATE SODIUM
     Indication: Product used for unknown indication
     Dosage: UNK
     Route: 014
     Dates: start: 20220518, end: 20220518
  15. SODIUM HYALURONATE [Concomitant]
     Active Substance: HYALURONATE SODIUM
     Dosage: UNK
     Route: 014
     Dates: start: 20220527, end: 20220527
  16. SODIUM HYALURONATE [Concomitant]
     Active Substance: HYALURONATE SODIUM
     Dosage: UNK
     Route: 014
     Dates: start: 20220602, end: 20220602
  17. SODIUM HYALURONATE [Concomitant]
     Active Substance: HYALURONATE SODIUM
     Dosage: UNK
     Route: 014
     Dates: start: 20220609, end: 20220609
  18. SODIUM HYALURONATE [Concomitant]
     Active Substance: HYALURONATE SODIUM
     Dosage: UNK
     Route: 014
     Dates: start: 20220617, end: 20220617
  19. HERBAL NOS [Concomitant]
     Active Substance: HERBALS
     Indication: Influenza like illness
     Dosage: UNK
     Route: 048
     Dates: start: 20220726, end: 20220729
  20. IBUPROFEN [Concomitant]
     Active Substance: IBUPROFEN
     Indication: COVID-19
     Dosage: UNK
     Route: 048
     Dates: start: 20221223, end: 20221224

REACTIONS (19)
  - Nephrolithiasis [Not Recovered/Not Resolved]
  - Tinnitus [Recovered/Resolved]
  - Headache [Recovered/Resolved]
  - Injection site reaction [Recovered/Resolved]
  - Injection site reaction [Recovered/Resolved]
  - Injection site reaction [Recovered/Resolved]
  - Injection site reaction [Recovered/Resolved]
  - Injection site reaction [Recovered/Resolved]
  - Injection site reaction [Recovered/Resolved]
  - Injection site reaction [Recovered/Resolved]
  - Injection site reaction [Recovered/Resolved]
  - Influenza like illness [Recovered/Resolved]
  - Influenza like illness [Recovered/Resolved]
  - Weight decreased [Recovered/Resolved]
  - COVID-19 [Recovered/Resolved]
  - Headache [Recovered/Resolved]
  - Dizziness [Recovered/Resolved]
  - Influenza like illness [Recovered/Resolved]
  - Diarrhoea [Recovered/Resolved]

NARRATIVE: CASE EVENT DATE: 20211114
